FAERS Safety Report 5068819-4 (Version None)
Quarter: 2006Q3

REPORT INFORMATION
  Report Type: 
  Country: None (occurrence: None)
  Receive Date: 20060802
  Receipt Date: 20060417
  Transmission Date: 20061208
  Serious: No
  Sender: FDA-Public Use
  Company Number: US-BRISTOL-MYERS SQUIBB COMPANY-13348701

PATIENT
  Age: 53 Year
  Sex: Male
  Weight: 116 kg

DRUGS (2)
  1. COUMADIN [Suspect]
     Indication: DEEP VEIN THROMBOSIS
     Dosage: SINCE MAR-2006, 10 MG ORALLY ONCE DAILY FOR 2 DAYS AND 7.5 MG ORALLY ONCE DAILY FOR 5 DAYS
     Route: 048
     Dates: start: 20060130
  2. COUMADIN [Suspect]
     Indication: DEEP VEIN THROMBOSIS
     Route: 048
     Dates: start: 20060301

REACTIONS (1)
  - SKIN DISCOLOURATION [None]
